FAERS Safety Report 24929781 (Version 1)
Quarter: 2025Q1

REPORT INFORMATION
  Report Type: Spontaneous
  Country: DE (occurrence: DE)
  Receive Date: 20250205
  Receipt Date: 20250205
  Transmission Date: 20250409
  Serious: Yes (Death, Hospitalization, Other)
  Sender: AMGEN
  Company Number: DE-AMGEN-DEUSP2025021926

PATIENT
  Age: 70 Year
  Sex: Male

DRUGS (1)
  1. CINACALCET HYDROCHLORIDE [Suspect]
     Active Substance: CINACALCET HYDROCHLORIDE
     Indication: Hyperparathyroidism tertiary
     Route: 065

REACTIONS (4)
  - Death [Fatal]
  - Pneumocystis jirovecii pneumonia [Unknown]
  - Hypercalcaemia [Unknown]
  - Off label use [Unknown]
